FAERS Safety Report 7764469-7 (Version None)
Quarter: 2011Q3

REPORT INFORMATION
  Report Type: 
  Country: None (occurrence: None)
  Receive Date: 20110919
  Receipt Date: 20110906
  Transmission Date: 20111222
  Serious: Yes (Other)
  Sender: FDA-Public Use
  Company Number: GER/UKI/11/0021056

PATIENT
  Age: 22 Year
  Sex: Female

DRUGS (2)
  1. RISPERIDONE [Suspect]
     Indication: PRODUCT USED FOR UNKNOWN INDICATION
     Dosage: 1 MG, 1 IN 1 D
  2. SERTRALINE HYDROCHLORIDE [Concomitant]

REACTIONS (6)
  - VITH NERVE PARALYSIS [None]
  - BENIGN INTRACRANIAL HYPERTENSION [None]
  - RETINAL VASCULAR DISORDER [None]
  - VISION BLURRED [None]
  - WEIGHT INCREASED [None]
  - DIPLOPIA [None]
